FAERS Safety Report 5499174-3 (Version None)
Quarter: 2007Q4

REPORT INFORMATION
  Report Type: 
  Country: None (occurrence: None)
  Receive Date: 20071026
  Receipt Date: 20071022
  Transmission Date: 20080405
  Serious: Yes (Hospitalization)
  Sender: FDA-Public Use
  Company Number: ES-BRISTOL-MYERS SQUIBB COMPANY-13951132

PATIENT
  Age: 62 Year
  Sex: Female

DRUGS (3)
  1. AMOXICILLIN [Suspect]
     Indication: PYREXIA
  2. AMOXICILLIN [Suspect]
     Indication: LYMPHADENOPATHY
  3. AMOXICILLIN [Suspect]
     Indication: ODYNOPHAGIA

REACTIONS (5)
  - CHORIOMENINGITIS LYMPHOCYTIC [None]
  - LEUKOCYTOSIS [None]
  - LINEAR IGA DISEASE [None]
  - NEUTROPHILIA [None]
  - TRANSAMINASES INCREASED [None]
